FAERS Safety Report 9918806 (Version 3)
Quarter: 2014Q1

REPORT INFORMATION
  Report Type: Spontaneous
  Country: FR (occurrence: FR)
  Receive Date: 20140224
  Receipt Date: 20140325
  Transmission Date: 20141002
  Serious: Yes (Life-Threatening, Hospitalization, Other)
  Sender: FDA-Public Use
  Company Number: FR-JNJFOC-20140211561

PATIENT
  Age: 70 Year
  Sex: Female

DRUGS (9)
  1. XARELTO [Suspect]
     Indication: HIP SURGERY
     Route: 048
     Dates: start: 20130409, end: 20130507
  2. XARELTO [Suspect]
     Indication: THROMBOSIS PROPHYLAXIS
     Route: 048
     Dates: start: 20130409, end: 20130507
  3. TRASTUZUMAB [Suspect]
     Indication: BREAST CANCER
     Dosage: EVERY THREE WEEKS
     Route: 042
     Dates: start: 20130327, end: 20130513
  4. SOLUPRED [Concomitant]
     Indication: ASTHMA
     Route: 065
     Dates: start: 2011
  5. OMEPRAZOLE [Concomitant]
     Route: 065
  6. DIFFU K [Concomitant]
     Route: 065
     Dates: start: 201210
  7. TINZAPARIN SODIUM [Concomitant]
     Route: 065
  8. LEVOTHYROX [Concomitant]
     Route: 065
  9. VENTOLIN [Concomitant]
     Route: 065

REACTIONS (5)
  - Interstitial lung disease [Recovered/Resolved]
  - Pulmonary embolism [Recovered/Resolved]
  - Drug ineffective [Unknown]
  - Intentional drug misuse [Unknown]
  - Off label use [Unknown]
